FAERS Safety Report 12381483 (Version 6)
Quarter: 2016Q4

REPORT INFORMATION
  Report Type: Report from Study
  Country: CA (occurrence: CA)
  Receive Date: 20160518
  Receipt Date: 20161115
  Transmission Date: 20170207
  Serious: Yes (Other)
  Sender: FDA-Public Use
  Company Number: CA-JNJFOC-20160510761

PATIENT
  Age: 77 Year
  Sex: Male

DRUGS (2)
  1. IMBRUVICA [Suspect]
     Active Substance: IBRUTINIB
     Indication: CHRONIC LYMPHOCYTIC LEUKAEMIA
     Route: 048
     Dates: start: 20160512
  2. IMBRUVICA [Suspect]
     Active Substance: IBRUTINIB
     Indication: CHRONIC LYMPHOCYTIC LEUKAEMIA
     Route: 048
     Dates: start: 20151214, end: 20160510

REACTIONS (11)
  - Chest discomfort [Not Recovered/Not Resolved]
  - Urticaria [Not Recovered/Not Resolved]
  - Splenomegaly [Recovered/Resolved]
  - Cough [Recovered/Resolved]
  - Pruritus [Not Recovered/Not Resolved]
  - Haematochezia [Recovered/Resolved]
  - Lung disorder [Recovered/Resolved]
  - Arthropod bite [Recovering/Resolving]
  - Wheezing [Not Recovered/Not Resolved]
  - Platelet count decreased [Recovering/Resolving]
  - Visual impairment [Recovered/Resolved]

NARRATIVE: CASE EVENT DATE: 20160508
